FAERS Safety Report 6393670-2 (Version None)
Quarter: 2009Q4

REPORT INFORMATION
  Report Type: 
  Country: None (occurrence: None)
  Receive Date: 20091008
  Receipt Date: 20090929
  Transmission Date: 20100525
  Serious: Yes (Other)
  Sender: FDA-Public Use
  Company Number: GB-PFIZER INC-2009276472

PATIENT

DRUGS (2)
  1. LIPITOR [Suspect]
     Indication: CARDIOVASCULAR DISORDER
  2. DIFLUCAN [Suspect]
     Indication: ORAL CANDIDIASIS

REACTIONS (6)
  - CARDIAC ARREST [None]
  - DIALYSIS [None]
  - DRUG INTERACTION [None]
  - INFECTION [None]
  - ORAL CANDIDIASIS [None]
  - RHABDOMYOLYSIS [None]
